FAERS Safety Report 4315163-6 (Version None)
Quarter: 2004Q1

REPORT INFORMATION
  Report Type: 
  Country: None (occurrence: None)
  Receive Date: 20040310
  Receipt Date: 20040224
  Transmission Date: 20041129
  Serious: Yes (Hospitalization)
  Sender: FDA-Public Use
  Company Number: FR-BRISTOL-MYERS SQUIBB COMPANY-12529038

PATIENT
  Age: 77 Year
  Sex: Male

DRUGS (5)
  1. ENDOXAN [Suspect]
     Indication: MANTLE CELL LYMPHOMA
     Route: 042
     Dates: start: 20031013, end: 20031013
  2. ETOPOSIDE [Suspect]
     Indication: MANTLE CELL LYMPHOMA
     Route: 042
     Dates: start: 20031013, end: 20031013
  3. ADRIAMYCIN PFS [Suspect]
     Indication: MANTLE CELL LYMPHOMA
     Route: 042
     Dates: start: 20031013, end: 20031013
  4. SOLU-MEDROL [Suspect]
     Indication: MANTLE CELL LYMPHOMA
     Route: 042
     Dates: start: 20031013, end: 20031013
  5. RANIPLEX [Suspect]
     Route: 048
     Dates: start: 20000615, end: 20031122

REACTIONS (6)
  - AGITATION [None]
  - CONFUSIONAL STATE [None]
  - CSF PROTEIN INCREASED [None]
  - HALLUCINATION, VISUAL [None]
  - INFLAMMATION [None]
  - TRANCE [None]
